FAERS Safety Report 16461396 (Version 1)
Quarter: 2019Q2

REPORT INFORMATION
  Report Type: Spontaneous
  Country: GB (occurrence: GB)
  Receive Date: 20190620
  Receipt Date: 20190620
  Transmission Date: 20190711
  Serious: Yes (Life-Threatening, Hospitalization, Other)
  Sender: FDA-Public Use
  Company Number: GB-NOVOPROD-667152

PATIENT
  Age: 59 Year
  Sex: Male

DRUGS (8)
  1. PARACETAMOL [Concomitant]
     Active Substance: ACETAMINOPHEN
  2. METFORMIN [Concomitant]
     Active Substance: METFORMIN HYDROCHLORIDE
  3. GLICLAZIDE [Concomitant]
     Active Substance: GLICLAZIDE
  4. RAMIPRIL. [Concomitant]
     Active Substance: RAMIPRIL
  5. ATORVASTATIN [Concomitant]
     Active Substance: ATORVASTATIN
  6. GLYCERYL TRINITRATE [Concomitant]
     Active Substance: NITROGLYCERIN
  7. ACETYLSALICYLIC ACID [Concomitant]
     Active Substance: ASPIRIN
  8. OZEMPIC [Suspect]
     Active Substance: SEMAGLUTIDE
     Indication: TYPE 2 DIABETES MELLITUS
     Dosage: 1.5 ML (0.25MG/0.19ML IN PRE FILLED SYRINGE)
     Route: 058
     Dates: start: 20190501, end: 20190516

REACTIONS (6)
  - Blood potassium increased [Unknown]
  - Hypophagia [Unknown]
  - Diarrhoea [Not Recovered/Not Resolved]
  - Acute kidney injury [Unknown]
  - Vomiting [Not Recovered/Not Resolved]
  - Nausea [Not Recovered/Not Resolved]

NARRATIVE: CASE EVENT DATE: 20190501
